FAERS Safety Report 16939771 (Version 1)
Quarter: 2019Q4

REPORT INFORMATION
  Report Type: Spontaneous
  Country: US (occurrence: US)
  Receive Date: 20190828
  Receipt Date: 20190828
  Transmission Date: 20200122
  Serious: Yes (Hospitalization, Other)
  Sender: FDA-Public Use
  Company Number: None

PATIENT
  Age: 61 Year
  Sex: Female

DRUGS (1)
  1. ZOLPIDEM [Suspect]
     Active Substance: ZOLPIDEM TARTRATE
     Indication: INSOMNIA
     Route: 048
     Dates: start: 20151202, end: 20190409

REACTIONS (7)
  - Skin laceration [None]
  - Traumatic haematoma [None]
  - Concussion [None]
  - Somnambulism [None]
  - Fall [None]
  - Disorientation [None]
  - Head injury [None]

NARRATIVE: CASE EVENT DATE: 20190308
